FAERS Safety Report 7866348-3 (Version None)
Quarter: 2011Q4

REPORT INFORMATION
  Report Type: 
  Country: None (occurrence: None)
  Receive Date: 20111028
  Receipt Date: 20110527
  Transmission Date: 20120403
  Serious: No
  Sender: FDA-Public Use
  Company Number: US-GLAXOSMITHKLINE-A0930107A

PATIENT
  Age: 40 Year
  Sex: Male

DRUGS (2)
  1. ADVAIR DISKUS 100/50 [Suspect]
     Route: 065
  2. COPAXONE [Suspect]
     Indication: MULTIPLE SCLEROSIS
     Dosage: 20MG PER DAY
     Route: 058
     Dates: start: 20100901

REACTIONS (5)
  - DYSPNOEA [None]
  - SWELLING FACE [None]
  - PALPITATIONS [None]
  - FLUSHING [None]
  - ANXIETY [None]
